FAERS Safety Report 4427825-0 (Version None)
Quarter: 2004Q3

REPORT INFORMATION
  Report Type: 
  Country: None (occurrence: None)
  Receive Date: 20040812
  Receipt Date: 20040806
  Transmission Date: 20050211
  Serious: Yes (Hospitalization)
  Sender: FDA-Public Use
  Company Number: US013535

PATIENT
  Sex: Male

DRUGS (1)
  1. PROVIGIL [Suspect]
     Indication: SLEEP APNOEA SYNDROME
     Dosage: 100 MG Q4HR ORAL
     Route: 048
     Dates: start: 20020101

REACTIONS (2)
  - AGGRESSION [None]
  - DEPRESSION [None]
